FAERS Safety Report 12098455 (Version 1)
Quarter: 2016Q1

REPORT INFORMATION
  Report Type: Spontaneous
  Country: JP (occurrence: JP)
  Receive Date: 20160222
  Receipt Date: 20160222
  Transmission Date: 20160526
  Serious: Yes (Life-Threatening)
  Sender: FDA-Public Use
  Company Number: JP-TAKEDA-2016TJP000264

PATIENT
  Age: 35 Year
  Sex: Male

DRUGS (6)
  1. ROZEREM [Suspect]
     Active Substance: RAMELTEON
     Indication: SLEEP DISORDER
     Dosage: 8 MG, UNK
     Route: 048
     Dates: start: 20151130, end: 20151206
  2. YOKUKANSAN [Suspect]
     Active Substance: HERBALS
     Indication: ALCOHOLISM
     Dosage: 7.5 G, TID
     Route: 048
     Dates: start: 20151130, end: 20151229
  3. METHYCOBAL [Concomitant]
     Active Substance: METHYLCOBALAMIN
     Indication: SLEEP DISORDER
     Dosage: 1000 ?G, QD
     Route: 048
     Dates: start: 20151130, end: 20151229
  4. ROZEREM [Suspect]
     Active Substance: RAMELTEON
     Dosage: 4 MG, UNK
     Route: 048
     Dates: start: 20151207, end: 20151229
  5. UNSPECIFIED HERBAL AND TRADITIONAL MEDICINE [Suspect]
     Active Substance: HERBALS
     Indication: DEPRESSION
     Dosage: 7.5 G, TID
     Route: 048
     Dates: start: 20151207, end: 20151229
  6. UNSPECIFIED HERBAL AND TRADITIONAL MEDICINE [Suspect]
     Active Substance: HERBALS
     Indication: SLEEP DISORDER

REACTIONS (6)
  - Aspartate aminotransferase increased [None]
  - Hepatic function abnormal [Recovered/Resolved with Sequelae]
  - Prescribed underdose [Unknown]
  - Alanine aminotransferase increased [None]
  - Therapeutic response prolonged [Unknown]
  - Pruritus [None]

NARRATIVE: CASE EVENT DATE: 20151207
